FAERS Safety Report 5331156-4 (Version None)
Quarter: 2007Q2

REPORT INFORMATION
  Report Type: 
  Country: None (occurrence: None)
  Receive Date: 20070522
  Receipt Date: 20070521
  Transmission Date: 20071010
  Serious: Yes (Congenital Anomaly, Other)
  Sender: FDA-Public Use
  Company Number: GB-BRISTOL-MYERS SQUIBB COMPANY-13488366

PATIENT
  Age: 4 Decade
  Sex: Female

DRUGS (3)
  1. HYDREA [Suspect]
     Indication: SICKLE CELL ANAEMIA
  2. PARACETAMOL [Concomitant]
  3. PENICILLIN [Concomitant]

REACTIONS (3)
  - ABORTION INDUCED [None]
  - FOETAL CHROMOSOME ABNORMALITY [None]
  - PREGNANCY [None]
